FAERS Safety Report 21446108 (Version 1)
Quarter: 2022Q4

REPORT INFORMATION
  Report Type: Spontaneous
  Country: CA (occurrence: CA)
  Receive Date: 20221012
  Receipt Date: 20221012
  Transmission Date: 20230112
  Serious: Yes (Other)
  Sender: FDA-Public Use
  Company Number: CA-PFIZER INC-202201212955

PATIENT
  Age: 63 Year
  Sex: Female

DRUGS (2)
  1. METHOTREXATE SODIUM [Suspect]
     Active Substance: METHOTREXATE SODIUM
     Indication: Uveitis
     Dosage: 1 DF
     Route: 065
  2. HADLIMA [Suspect]
     Active Substance: ADALIMUMAB-BWWD
     Indication: Uveitis
     Dosage: UNKNOWN

REACTIONS (2)
  - Eye inflammation [Unknown]
  - Drug ineffective [Unknown]
